FAERS Safety Report 7714569-2 (Version None)
Quarter: 2011Q3

REPORT INFORMATION
  Report Type: 
  Country: None (occurrence: None)
  Receive Date: 20110829
  Receipt Date: 20110820
  Transmission Date: 20111222
  Serious: Yes (Other)
  Sender: FDA-Public Use
  Company Number: US-JNJFOC-20110408256

PATIENT
  Sex: Male
  Weight: 79.83 kg

DRUGS (3)
  1. LEVAQUIN [Suspect]
     Indication: DIVERTICULITIS
     Route: 042
     Dates: start: 20110413, end: 20110414
  2. LEVAQUIN [Suspect]
     Route: 048
     Dates: start: 20110414, end: 20110414
  3. METRONIDAZOLE [Concomitant]
     Indication: DIVERTICULITIS
     Route: 048
     Dates: start: 20110413

REACTIONS (2)
  - DYSSTASIA [None]
  - ARTHRALGIA [None]
